FAERS Safety Report 12084339 (Version 6)
Quarter: 2016Q2

REPORT INFORMATION
  Report Type: Spontaneous
  Country: US (occurrence: US)
  Receive Date: 20160217
  Receipt Date: 20160426
  Transmission Date: 20160815
  Serious: Yes (Hospitalization)
  Sender: FDA-Public Use
  Company Number: US-ACTELION PHARMACEUTICALS US, INC.-A-NJ2015-127791

PATIENT
  Age: 49 Year
  Sex: Male

DRUGS (1)
  1. VELETRI [Suspect]
     Active Substance: EPOPROSTENOL
     Indication: PULMONARY HYPERTENSION
     Dosage: 30.7 NG/KG, PER MIN
     Route: 042
     Dates: start: 20150115

REACTIONS (9)
  - Unevaluable event [Unknown]
  - Laceration [Unknown]
  - Vomiting [Unknown]
  - Paracentesis [Unknown]
  - Headache [Recovering/Resolving]
  - Catheter site haemorrhage [Unknown]
  - Catheter site urticaria [Recovering/Resolving]
  - Diarrhoea [Unknown]
  - Pain in jaw [Unknown]

NARRATIVE: CASE EVENT DATE: 201601
